FAERS Safety Report 10863837 (Version 1)
Quarter: 2015Q1

REPORT INFORMATION
  Report Type: Spontaneous
  Country: FR (occurrence: FR)
  Receive Date: 20150223
  Receipt Date: 20150223
  Transmission Date: 20150721
  Serious: Yes (Death, Hospitalization, Other)
  Sender: FDA-Public Use
  Company Number: FR-PFIZER INC-2015062805

PATIENT
  Age: 53 Year
  Sex: Female

DRUGS (8)
  1. PANTOPRAZOLE [Concomitant]
     Active Substance: PANTOPRAZOLE SODIUM
     Dosage: UNK
     Dates: start: 20141129
  2. LANSOYL [Concomitant]
     Active Substance: MINERAL OIL
     Dosage: UNK, AS NEEDED
     Route: 048
  3. PARACETAMOL [Concomitant]
     Active Substance: ACETAMINOPHEN
     Dosage: 1 G, AS NEEDED UP TO 3 G DAILY
     Route: 048
  4. CERITINIB [Suspect]
     Active Substance: CERITINIB
     Dosage: 750 MG, 1X/DAY
     Route: 048
     Dates: start: 20140812, end: 20141129
  5. URBANYL [Suspect]
     Active Substance: CLOBAZAM
     Dosage: 10 MG, 1X/DAY
     Route: 048
     Dates: start: 20141120, end: 20141125
  6. VOGALENE [Concomitant]
     Active Substance: METOPIMAZINE
     Dosage: UNK, AS NEEDED
     Route: 048
  7. KEPPRA [Suspect]
     Active Substance: LEVETIRACETAM
     Dosage: 500 MG, 2X/DAY
     Route: 048
     Dates: start: 20141120, end: 20141201
  8. EFFEXOR [Suspect]
     Active Substance: VENLAFAXINE HYDROCHLORIDE
     Dosage: 37.5 MG, 1X/DAY
     Route: 048
     Dates: end: 20141201

REACTIONS (5)
  - Gastrointestinal toxicity [Unknown]
  - Seizure [Unknown]
  - Disease progression [Fatal]
  - Hepatitis [Recovering/Resolving]
  - Lung neoplasm malignant [Fatal]

NARRATIVE: CASE EVENT DATE: 20141124
